FAERS Safety Report 25847849 (Version 1)
Quarter: 2025Q3

REPORT INFORMATION
  Report Type: Other
  Country: US (occurrence: US)
  Receive Date: 20250925
  Receipt Date: 20250925
  Transmission Date: 20251020
  Serious: No
  Sender: SIGMA TAU
  Company Number: US-LEADIANT BIOSCIENCES, INC.-2025LBI000041

PATIENT
  Sex: Male

DRUGS (1)
  1. MATULANE [Suspect]
     Active Substance: PROCARBAZINE HYDROCHLORIDE
     Indication: Brain neoplasm malignant
     Route: 048
     Dates: start: 20240424

REACTIONS (9)
  - Peripheral swelling [Unknown]
  - Gait disturbance [Unknown]
  - Vision blurred [Unknown]
  - Facial paralysis [Unknown]
  - Headache [Unknown]
  - Mobility decreased [Unknown]
  - Disease progression [Unknown]
  - Hemiparesis [Unknown]
  - Loss of personal independence in daily activities [Unknown]
